FAERS Safety Report 4281119-5 (Version None)
Quarter: 2004Q1

REPORT INFORMATION
  Report Type: 
  Country: None (occurrence: None)
  Receive Date: 20040108
  Receipt Date: 20030120
  Transmission Date: 20041129
  Serious: Yes (Other)
  Sender: FDA-Public Use
  Company Number: HQ6289522JAN2003

PATIENT
  Sex: Female

DRUGS (1)
  1. PREMPRO [Suspect]
     Indication: HORMONE REPLACEMENT THERAPY
     Dosage: 0.625MG/2.5MG ONE TABLET DAILY, ORAL
     Route: 048
     Dates: start: 19930728, end: 19960101

REACTIONS (1)
  - MYOCARDIAL INFARCTION [None]
